FAERS Safety Report 20172967 (Version 1)
Quarter: 2021Q4

REPORT INFORMATION
  Report Type: Report from Study
  Country: DE (occurrence: None)
  Receive Date: 20211211
  Receipt Date: 20211211
  Transmission Date: 20220303
  Serious: Yes (Hospitalization)
  Sender: FDA-Public Use
  Company Number: DE-ROCHE-2972133

PATIENT
  Age: 82 Year
  Sex: Female
  Weight: 64 kg

DRUGS (4)
  1. ATEZOLIZUMAB [Suspect]
     Active Substance: ATEZOLIZUMAB
     Indication: Ovarian cancer
     Dosage: ON 24/NOV/2021, SHE RECEIVED THE LAST DOSE OF BLINDED ATEZOLIZUMAB PRIOR TO EVENT.
     Route: 042
     Dates: start: 20210901
  2. BEVACIZUMAB [Suspect]
     Active Substance: BEVACIZUMAB
     Indication: Ovarian cancer
     Dosage: ON 24/NOV/2021, SHE RECEIVED THE LAST DOSE OF BEVACIZUMAB PRIOR TO SAE
     Route: 042
     Dates: start: 20210901
  3. DOXORUBICIN HYDROCHLORIDE [Suspect]
     Active Substance: DOXORUBICIN HYDROCHLORIDE
     Indication: Ovarian cancer
     Dosage: ON 24/SEP/2021, SHE RECEIVED THE LAST DOSE OF PLD PRIOR TO SAE
     Route: 042
     Dates: start: 20210901
  4. GRANISETRON [Concomitant]
     Active Substance: GRANISETRON
     Route: 042
     Dates: start: 20210901

REACTIONS (1)
  - Constipation [Recovered/Resolved]

NARRATIVE: CASE EVENT DATE: 20211127
